FAERS Safety Report 8578973-5 (Version None)
Quarter: 2012Q3

REPORT INFORMATION
  Report Type: 
  Country: None (occurrence: None)
  Receive Date: 20120808
  Receipt Date: 20120806
  Transmission Date: 20120928
  Serious: Yes (Death)
  Sender: FDA-Public Use
  Company Number: CA-PFIZER INC-2012190888

PATIENT
  Age: 44 Year
  Sex: Male

DRUGS (2)
  1. ZIPRASIDONE HYDROCHLORIDE [Suspect]
     Dosage: 40 MG, UNK
     Dates: start: 20120221
  2. ZIPRASIDONE HYDROCHLORIDE [Suspect]
     Dosage: 60 MG, UNK

REACTIONS (1)
  - COMPLETED SUICIDE [None]
